FAERS Safety Report 8521374-6 (Version None)
Quarter: 2012Q3

REPORT INFORMATION
  Report Type: 
  Country: None (occurrence: None)
  Receive Date: 20120712
  Receipt Date: 20120712
  Transmission Date: 20120928
  Serious: No
  Sender: FDA-Public Use
  Company Number: None

PATIENT

DRUGS (1)
  1. SIMVASTATIN [Suspect]

REACTIONS (7)
  - TOXICITY TO VARIOUS AGENTS [None]
  - ANAEMIA [None]
  - NIGHTMARE [None]
  - CEREBROVASCULAR ACCIDENT [None]
  - AMMONIA INCREASED [None]
  - SYNCOPE [None]
  - FALL [None]
